FAERS Safety Report 12971087 (Version 2)
Quarter: 2016Q4

REPORT INFORMATION
  Report Type: Spontaneous
  Country: US (occurrence: US)
  Receive Date: 20161123
  Receipt Date: 20161128
  Transmission Date: 20170207
  Serious: No
  Sender: FDA-Public Use
  Company Number: US-JAZZ-2016-US-019079

PATIENT
  Sex: Female

DRUGS (11)
  1. CONCERTA [Concomitant]
     Active Substance: METHYLPHENIDATE HYDROCHLORIDE
  2. FLUMAZENIL. [Concomitant]
     Active Substance: FLUMAZENIL
  3. SINEMET [Concomitant]
     Active Substance: CARBIDOPA\LEVODOPA
  4. XYREM [Suspect]
     Active Substance: SODIUM OXYBATE
     Indication: NARCOLEPSY
     Dosage: 3 G, BID
     Route: 048
     Dates: start: 201607
  5. XYREM [Suspect]
     Active Substance: SODIUM OXYBATE
     Indication: CATAPLEXY
  6. LEXAPRO [Concomitant]
     Active Substance: ESCITALOPRAM OXALATE
  7. PROPRANOLOL [Concomitant]
     Active Substance: PROPRANOLOL\PROPRANOLOL HYDROCHLORIDE
  8. DEPLIN [Concomitant]
     Active Substance: LEVOMEFOLATE CALCIUM
  9. ZIAC                               /00821801/ [Concomitant]
     Active Substance: CEFIXIME
  10. METHAMPHETAMINE [Concomitant]
     Active Substance: METHAMPHETAMINE
  11. SYNTHROID [Concomitant]
     Active Substance: LEVOTHYROXINE SODIUM

REACTIONS (1)
  - Anxiety [Not Recovered/Not Resolved]

NARRATIVE: CASE EVENT DATE: 2016
